FAERS Safety Report 8139002-0 (Version None)
Quarter: 2012Q1

REPORT INFORMATION
  Report Type: 
  Country: None (occurrence: None)
  Receive Date: 20120215
  Receipt Date: 20120208
  Transmission Date: 20120608
  Serious: Yes (Death)
  Sender: FDA-Public Use
  Company Number: JP-GILEAD-2012-0050654

PATIENT
  Age: 51 Year
  Sex: Male

DRUGS (6)
  1. RITONAVIR [Suspect]
     Indication: HIV INFECTION
     Dosage: 200 MG, QD
     Route: 048
     Dates: start: 20080926, end: 20101230
  2. TENOFOVIR DISOPROXIL FUMARATE [Suspect]
     Indication: HIV INFECTION
     Dosage: QD
     Route: 048
     Dates: start: 20091002, end: 20101230
  3. ANTIHEMOPHILIC FACTOR (HUMAN) [Concomitant]
     Indication: COAGULATION FACTOR VIII LEVEL
     Dosage: UNK
     Dates: start: 20090401, end: 20101230
  4. DARUNAVIR ETHANOLATE [Suspect]
     Indication: HIV INFECTION
     Dosage: 1200 MG, QD
     Route: 048
     Dates: start: 20080926, end: 20101230
  5. RALTEGRAVIR [Suspect]
     Indication: HIV INFECTION
     Dosage: 800 MG, QD
     Route: 048
     Dates: start: 20080926, end: 20101230
  6. KOGENATE FS [Concomitant]
     Dosage: UNK
     Dates: start: 20090401, end: 20101230

REACTIONS (1)
  - DEATH [None]
